FAERS Safety Report 10273811 (Version 14)
Quarter: 2015Q4

REPORT INFORMATION
  Report Type: Spontaneous
  Country: US (occurrence: US)
  Receive Date: 20140702
  Receipt Date: 20151105
  Transmission Date: 20160304
  Serious: Yes (Other)
  Sender: FDA-Public Use
  Company Number: US-GLAXOSMITHKLINE-A1079288A

PATIENT
  Age: 56 Year
  Sex: Female

DRUGS (11)
  1. ADVAIR HFA [Suspect]
     Active Substance: FLUTICASONE PROPIONATE\SALMETEROL XINAFOATE
     Indication: PRODUCT USED FOR UNKNOWN INDICATION
     Dosage: 250/50 MCG, UNKNOWN DOSING
     Route: 065
     Dates: start: 20040630, end: 20110915
  2. VALTREX [Suspect]
     Active Substance: VALACYCLOVIR HYDROCHLORIDE
     Dosage: 1 G, UNK
  3. VALTREX [Suspect]
     Active Substance: VALACYCLOVIR HYDROCHLORIDE
     Dosage: UNK
  4. VALTREX [Suspect]
     Active Substance: VALACYCLOVIR HYDROCHLORIDE
     Dosage: 3 G, QD
     Route: 065
  5. VALTREX [Suspect]
     Active Substance: VALACYCLOVIR HYDROCHLORIDE
     Dosage: 1000 MG, BID
     Route: 065
  6. VALTREX [Suspect]
     Active Substance: VALACYCLOVIR HYDROCHLORIDE
     Indication: GENITAL HERPES
     Dosage: 500 MG, UNK
  7. VALTREX [Suspect]
     Active Substance: VALACYCLOVIR HYDROCHLORIDE
     Dosage: 500 MG, UNK
     Dates: start: 1985
  8. VALTREX [Suspect]
     Active Substance: VALACYCLOVIR HYDROCHLORIDE
     Dosage: UNK
     Dates: start: 1980
  9. VALTREX [Suspect]
     Active Substance: VALACYCLOVIR HYDROCHLORIDE
     Dosage: 500 MG, BID
     Route: 065
  10. VALTREX [Suspect]
     Active Substance: VALACYCLOVIR HYDROCHLORIDE
     Indication: HERPES VIRUS INFECTION
     Dosage: 1 G, UNKNOWN DOSING STARTING ON 30 JUNE 2004 AND DISCONTINUED ON 15 SEPTEMBER 2011 AND 500 MG, [...]
     Route: 065
     Dates: start: 20040630
  11. VENTOLIN HFA [Suspect]
     Active Substance: ALBUTEROL SULFATE
     Indication: PRODUCT USED FOR UNKNOWN INDICATION
     Dosage: UNKNOWN
     Route: 065
     Dates: start: 20120523

REACTIONS (26)
  - Brain injury [Unknown]
  - Wrong technique in product usage process [Unknown]
  - Mental impairment [Not Recovered/Not Resolved]
  - Agitation [Not Recovered/Not Resolved]
  - Rib deformity [Unknown]
  - Thinking abnormal [Unknown]
  - Seizure [Recovered/Resolved]
  - Craniocerebral injury [Unknown]
  - Drug ineffective [Unknown]
  - Intentional product use issue [Unknown]
  - Road traffic accident [Unknown]
  - Communication disorder [Not Recovered/Not Resolved]
  - Drug prescribing error [Unknown]
  - Slow speech [Unknown]
  - Seizure cluster [Unknown]
  - Brain operation [Unknown]
  - Head injury [Unknown]
  - Concussion [Unknown]
  - Back disorder [Unknown]
  - Cerebral disorder [Unknown]
  - Herpes virus infection [Unknown]
  - Condition aggravated [Unknown]
  - Loss of consciousness [Unknown]
  - Stress [Unknown]
  - Adverse event [Not Recovered/Not Resolved]
  - Headache [Unknown]

NARRATIVE: CASE EVENT DATE: 2004
